FAERS Safety Report 23468049 (Version 1)
Quarter: 2024Q1

REPORT INFORMATION
  Report Type: Spontaneous
  Country: JP (occurrence: JP)
  Receive Date: 20240201
  Receipt Date: 20240201
  Transmission Date: 20240410
  Serious: Yes (Other)
  Sender: FDA-Public Use
  Company Number: JP-002147023-NVSJ2024JP001556

PATIENT
  Sex: Female

DRUGS (7)
  1. FEMARA [Suspect]
     Active Substance: LETROZOLE
     Indication: Breast cancer metastatic
     Dosage: 2.5 MG, QD
     Route: 048
     Dates: start: 20201202
  2. IBRANCE [Suspect]
     Active Substance: PALBOCICLIB
     Indication: Breast cancer metastatic
     Dosage: 75 MG, QD
     Route: 048
     Dates: start: 20210622, end: 20220307
  3. IBRANCE [Suspect]
     Active Substance: PALBOCICLIB
     Indication: Breast cancer recurrent
  4. CALCIUM CARBONATE\CHOLECALCIFEROL\MAGNESIUM CARBONATE [Concomitant]
     Active Substance: CALCIUM CARBONATE\CHOLECALCIFEROL\MAGNESIUM CARBONATE
     Indication: Metastases to bone
     Dosage: UNK
     Route: 048
     Dates: start: 20201215
  5. DENOSUMAB [Concomitant]
     Active Substance: DENOSUMAB
     Indication: Metastases to bone
     Dosage: UNK
     Route: 058
     Dates: start: 20201215
  6. CODEINE PHOSPHATE [Concomitant]
     Active Substance: CODEINE PHOSPHATE
     Indication: Cough
     Dosage: UNK
     Route: 048
     Dates: start: 20211130
  7. IOMERON [Concomitant]
     Active Substance: IOMEPROL
     Indication: Product used for unknown indication
     Dosage: 100 ML
     Route: 065
     Dates: start: 20220308

REACTIONS (6)
  - Interstitial lung disease [Not Recovered/Not Resolved]
  - Cough [Unknown]
  - Breast cancer metastatic [Unknown]
  - Metastases to lung [Unknown]
  - Malignant neoplasm progression [Unknown]
  - Hepatic function abnormal [Unknown]

NARRATIVE: CASE EVENT DATE: 20210501
